APPROVED DRUG PRODUCT: CHILDREN'S CETIRIZINE HYDROCHLORIDE HIVES RELIEF
Active Ingredient: CETIRIZINE HYDROCHLORIDE
Strength: 5MG/5ML
Dosage Form/Route: SOLUTION;ORAL
Application: A090254 | Product #001
Applicant: PERRIGO R AND D CO
Approved: Apr 9, 2008 | RLD: No | RS: No | Type: OTC